FAERS Safety Report 10179866 (Version 1)
Quarter: 2014Q2

REPORT INFORMATION
  Report Type: Spontaneous
  Country: US (occurrence: US)
  Receive Date: 20140519
  Receipt Date: 20140519
  Transmission Date: 20141212
  Serious: No
  Sender: FDA-Public Use
  Company Number: US-AMGEN INC.-USASP2013071375

PATIENT
  Sex: Female

DRUGS (1)
  1. PROLIA [Suspect]
     Indication: FEMUR FRACTURE
     Dosage: UNK
     Route: 065
     Dates: start: 2012

REACTIONS (2)
  - Alopecia [Unknown]
  - Trichorrhexis [Unknown]
